FAERS Safety Report 19718792 (Version 1)
Quarter: 2021Q3

REPORT INFORMATION
  Report Type: Spontaneous
  Country: US (occurrence: US)
  Receive Date: 20210817
  Receipt Date: 20210817
  Transmission Date: 20211014
  Serious: Yes (Other)
  Sender: FDA-Public Use
  Company Number: None

PATIENT
  Age: 35 Year
  Sex: Female
  Weight: 74.84 kg

DRUGS (2)
  1. MULTIVITAMINS [Concomitant]
     Active Substance: VITAMINS
  2. NEUTROGENA ULTRA SHEER BODY MIST SUNSCREEN BROAD SPECTRUM SPF 30 NOS [Suspect]
     Active Substance: AVOBENZONE\HOMOSALATE\OCTISALATE\OCTOCRYLENE OR AVOBENZONE\HOMOSALATE\OCTISALATE\OCTOCRYLENE\OXYBENZONE
     Indication: PROPHYLAXIS AGAINST SOLAR RADIATION
     Dosage: ?          OTHER STRENGTH:SPF 30;QUANTITY:6 BOTTLES 5?9?2021;OTHER FREQUENCY:3XQD FOR 2 MONTHS;?
     Route: 058
     Dates: start: 20210519, end: 20210803

REACTIONS (6)
  - Headache [None]
  - Neck pain [None]
  - Dyspnoea [None]
  - Flushing [None]
  - Erythema [None]
  - Recall phenomenon [None]

NARRATIVE: CASE EVENT DATE: 20210520
